FAERS Safety Report 13125612 (Version 1)
Quarter: 2017Q1

REPORT INFORMATION
  Report Type: Spontaneous
  Country: US (occurrence: US)
  Receive Date: 20170117
  Receipt Date: 20170117
  Transmission Date: 20170428
  Serious: Yes (Death)
  Sender: FDA-Public Use
  Company Number: None

PATIENT
  Age: 60 Year
  Sex: Female

DRUGS (7)
  1. PANTOPRAZOLE [Concomitant]
     Active Substance: PANTOPRAZOLE SODIUM
  2. XARELT [Concomitant]
  3. MORPHINE [Concomitant]
     Active Substance: MORPHINE
  4. POTASSIUM CHLORIDE. [Concomitant]
     Active Substance: POTASSIUM CHLORIDE
  5. ANASTROZOLE. [Concomitant]
     Active Substance: ANASTROZOLE
  6. FUROSEMIDE. [Suspect]
     Active Substance: FUROSEMIDE
  7. IBRANCE [Suspect]
     Active Substance: PALBOCICLIB
     Indication: BREAST CANCER
     Dosage: 1 CAP DAILY X21 PO
     Route: 048
     Dates: start: 20160804, end: 201701

REACTIONS (1)
  - Death [None]

NARRATIVE: CASE EVENT DATE: 201701
